FAERS Safety Report 10393937 (Version 1)
Quarter: 2014Q3

REPORT INFORMATION
  Report Type: Report from Study
  Country: US (occurrence: US)
  Receive Date: 20140819
  Receipt Date: 20140819
  Transmission Date: 20150326
  Serious: Yes (Hospitalization)
  Sender: FDA-Public Use
  Company Number: US-CELGENEUS-163-21660-14080975

PATIENT
  Age: 66 Year
  Sex: Male
  Weight: 77.18 kg

DRUGS (2)
  1. ABRAXANE [Suspect]
     Active Substance: PACLITAXEL
     Indication: LUNG NEOPLASM MALIGNANT
     Route: 041
     Dates: start: 20130729, end: 20130805
  2. CARBOPLATIN. [Suspect]
     Active Substance: CARBOPLATIN
     Indication: LUNG NEOPLASM MALIGNANT
     Route: 065
     Dates: start: 20130729, end: 20130818

REACTIONS (1)
  - Atrial flutter [Recovered/Resolved with Sequelae]

NARRATIVE: CASE EVENT DATE: 20140620
